FAERS Safety Report 15042624 (Version 1)
Quarter: 2018Q2

REPORT INFORMATION
  Report Type: Spontaneous
  Country: PL (occurrence: PL)
  Receive Date: 20180621
  Receipt Date: 20180621
  Transmission Date: 20180711
  Serious: Yes (Life-Threatening, Hospitalization, Other)
  Sender: FDA-Public Use
  Company Number: PL-COVIS PHARMA B.V.-2018COV03688

PATIENT

DRUGS (2)
  1. LANOXIN [Suspect]
     Active Substance: DIGOXIN
     Route: 048
  2. THEOPHYLLINE [Suspect]
     Active Substance: THEOPHYLLINE ANHYDROUS
     Route: 048

REACTIONS (6)
  - Myocardial infarction [Unknown]
  - Electrocardiogram repolarisation abnormality [Unknown]
  - Suicide attempt [Unknown]
  - Toxicity to various agents [Unknown]
  - Conduction disorder [Unknown]
  - Ventricular arrhythmia [Unknown]
